FAERS Safety Report 19505152 (Version 3)
Quarter: 2021Q4

REPORT INFORMATION
  Report Type: Spontaneous
  Country: US (occurrence: US)
  Receive Date: 20210708
  Receipt Date: 20211004
  Transmission Date: 20220303
  Serious: No
  Sender: FDA-Public Use
  Company Number: NVSC2021US139832

PATIENT
  Sex: Male

DRUGS (3)
  1. COSENTYX [Suspect]
     Active Substance: SECUKINUMAB
     Indication: Product used for unknown indication
     Dosage: UNK (1ST DOSE)
     Route: 065
  2. COSENTYX [Suspect]
     Active Substance: SECUKINUMAB
     Dosage: UNK (2ND DOSE)
     Route: 065
  3. COSENTYX [Suspect]
     Active Substance: SECUKINUMAB
     Dosage: 360 MG, UNKNOWN (3RD LOADING DOSE)
     Route: 065

REACTIONS (4)
  - Drug delivery system issue [Unknown]
  - Needle issue [Unknown]
  - Accidental exposure to product [Unknown]
  - Incorrect dose administered [Unknown]
